FAERS Safety Report 23404032 (Version 2)
Quarter: 2024Q1

REPORT INFORMATION
  Report Type: Spontaneous
  Country: US (occurrence: US)
  Receive Date: 20240116
  Receipt Date: 20240124
  Transmission Date: 20240410
  Serious: No
  Sender: FDA-Public Use
  Company Number: US-SANOFI-01904308

PATIENT
  Age: 12 Year
  Sex: Male

DRUGS (3)
  1. DUPIXENT [Suspect]
     Active Substance: DUPILUMAB
     Indication: Eosinophilic oesophagitis
     Dosage: UNK
  2. CLARITIN [Concomitant]
     Active Substance: LORATADINE
  3. PANTOPRAZOLE [Concomitant]
     Active Substance: PANTOPRAZOLE

REACTIONS (7)
  - Viral infection [Unknown]
  - Cough [Unknown]
  - Pyrexia [Unknown]
  - Blood urine present [Unknown]
  - Protein urine [Unknown]
  - Abdominal pain [Unknown]
  - Change of bowel habit [Unknown]
